FAERS Safety Report 10872041 (Version 1)
Quarter: 2015Q1

REPORT INFORMATION
  Report Type: Spontaneous
  Country: US (occurrence: None)
  Receive Date: 20150223
  Receipt Date: 20150223
  Transmission Date: 20150721
  Serious: Yes (Other)
  Sender: FDA-Public Use
  Company Number: None

PATIENT
  Age: 65 Year
  Sex: Female
  Weight: 71.22 kg

DRUGS (17)
  1. METHOCARBAMOL 500MG [Concomitant]
  2. OMEPRAZOLE DR 20MG [Concomitant]
  3. LIDOCAINE PATCHES [Concomitant]
  4. FISH OIL [Concomitant]
     Active Substance: FISH OIL
  5. CO-Q-L0 100MG [Concomitant]
  6. CIPROFLOXACIN. [Suspect]
     Active Substance: CIPROFLOXACIN
     Indication: BACTERIAL INFECTION
     Dosage: 1
     Route: 048
     Dates: start: 20150216, end: 20150219
  7. MULTI-VITAMINS (CALCIUM PANTOTHENATE, FOLIC ACID, VITAMINS NOS) [Concomitant]
     Active Substance: VITAMINS
  8. CETIRIZINE [Concomitant]
     Active Substance: CETIRIZINE HYDROCHLORIDE
  9. ALPHA LIPOIC ACID 200MG [Concomitant]
  10. MIRA LAX 17G [Concomitant]
  11. METFORMIN HCL 500 MG [Concomitant]
  12. SIMVASTATIN 20MG [Concomitant]
     Active Substance: SIMVASTATIN
  13. CALCIUM + D3 600MG + 500IU  1- [Concomitant]
  14. LYSINE 500MG [Concomitant]
  15. CIPROFLOXACIN. [Suspect]
     Active Substance: CIPROFLOXACIN
     Indication: CYSTITIS
     Dosage: 1
     Route: 048
     Dates: start: 20150216, end: 20150219
  16. TRAMADOL HCL [Concomitant]
     Active Substance: TRAMADOL HYDROCHLORIDE
  17. CYCLOBENZAPR 10MG (FLEXERIL) [Concomitant]

REACTIONS (3)
  - Arthralgia [None]
  - Mobility decreased [None]
  - Myalgia [None]

NARRATIVE: CASE EVENT DATE: 20150218
